FAERS Safety Report 12409027 (Version 1)
Quarter: 2016Q2

REPORT INFORMATION
  Report Type: Spontaneous
  Country: AU (occurrence: AU)
  Receive Date: 20160526
  Receipt Date: 20160526
  Transmission Date: 20160815
  Serious: Yes (Hospitalization, Disabling)
  Sender: FDA-Public Use
  Company Number: AU-ASTRAZENECA-2016SE35575

PATIENT
  Age: 26349 Day
  Sex: Female
  Weight: 98 kg

DRUGS (6)
  1. LANTUS [Concomitant]
     Active Substance: INSULIN GLARGINE
     Indication: BLOOD GLUCOSE
  2. VINEGAR [Concomitant]
     Active Substance: ACETIC ACID
     Indication: DECREASED APPETITE
  3. BYETTA [Suspect]
     Active Substance: EXENATIDE
     Dosage: 10 UG BD
     Route: 058
     Dates: start: 20151118, end: 20151208
  4. NOVORAPID [Concomitant]
     Active Substance: INSULIN ASPART
     Indication: HYPERGLYCAEMIA
  5. BYETTA [Suspect]
     Active Substance: EXENATIDE
     Dosage: 5UG, BD
     Route: 058
     Dates: start: 20151020, end: 20151118
  6. CLEXANE [Concomitant]
     Active Substance: ENOXAPARIN SODIUM

REACTIONS (1)
  - Acute kidney injury [Not Recovered/Not Resolved]

NARRATIVE: CASE EVENT DATE: 20151208
